FAERS Safety Report 5099949-9 (Version None)
Quarter: 2006Q3

REPORT INFORMATION
  Report Type: 
  Country: None (occurrence: None)
  Receive Date: 20060906
  Receipt Date: 20060906
  Transmission Date: 20061208
  Serious: Yes (Other)
  Sender: FDA-Public Use
  Company Number: None

PATIENT
  Sex: Female
  Weight: 122.0176 kg

DRUGS (2)
  1. HYDROCODONE BITARTRATE AND ACETAMINOPHEN [Suspect]
     Indication: BACK PAIN
     Dosage: 7.5/500 ONE PO Q 4-6 HRS PO
     Route: 048
     Dates: start: 19970101
  2. CECLOR [Suspect]
     Indication: SINUSITIS
     Dosage: 250MG Q 8 HRS PO
     Route: 048
     Dates: start: 20051006

REACTIONS (3)
  - PHARYNGEAL OEDEMA [None]
  - PRURITUS [None]
  - URTICARIA [None]
